FAERS Safety Report 8090382-4 (Version None)
Quarter: 2012Q1

REPORT INFORMATION
  Report Type: 
  Country: None (occurrence: None)
  Receive Date: 20120129
  Receipt Date: 20111130
  Transmission Date: 20120608
  Serious: No
  Sender: FDA-Public Use
  Company Number: US-ABBOTT-11P-163-0879623-00

PATIENT
  Age: 31 Year
  Sex: Female

DRUGS (3)
  1. HUMIRA [Suspect]
     Indication: ECZEMA
     Dates: start: 20110201, end: 20110501
  2. HUMIRA [Suspect]
  3. HUMIRA [Suspect]

REACTIONS (3)
  - PAIN [None]
  - INJECTION SITE PAIN [None]
  - ECZEMA [None]
